FAERS Safety Report 23404000 (Version 2)
Quarter: 2024Q3

REPORT INFORMATION
  Report Type: Spontaneous
  Country: US (occurrence: US)
  Receive Date: 20240116
  Receipt Date: 20240722
  Transmission Date: 20241016
  Serious: Yes (Hospitalization, Other)
  Sender: SANOFI AVENTIS
  Company Number: US-SA-SAC20240110001361

PATIENT
  Age: 71 Year
  Sex: Male

DRUGS (1)
  1. REZUROCK [Suspect]
     Active Substance: BELUMOSUDIL
     Indication: Acute graft versus host disease
     Dosage: 200 MG, BID
     Route: 048
     Dates: start: 20220518

REACTIONS (15)
  - Pneumonia fungal [Unknown]
  - Hospitalisation [Unknown]
  - Carpal tunnel syndrome [Unknown]
  - Skin tightness [Unknown]
  - Stress [Unknown]
  - Frustration tolerance decreased [Unknown]
  - Hyperkeratosis [Unknown]
  - Weight decreased [Unknown]
  - Musculoskeletal stiffness [Unknown]
  - Influenza [Unknown]
  - Decreased appetite [Unknown]
  - Arthralgia [Unknown]
  - Fatigue [Unknown]
  - Pyrexia [Unknown]
  - Inappropriate schedule of product administration [Unknown]

NARRATIVE: CASE EVENT DATE: 20220518
